APPROVED DRUG PRODUCT: NALOXONE
Active Ingredient: NALOXONE HYDROCHLORIDE
Strength: 0.4MG/ML
Dosage Form/Route: INJECTABLE;INJECTION
Application: A070299 | Product #001 | TE Code: AP
Applicant: HIKMA PHARMACEUTICALS USA INC
Approved: Sep 24, 1986 | RLD: No | RS: No | Type: RX